FAERS Safety Report 9075349 (Version 1)
Quarter: 2013Q1

REPORT INFORMATION
  Report Type: Report from Study
  Country: US (occurrence: US)
  Receive Date: 20130129
  Receipt Date: 20130129
  Transmission Date: 20140127
  Serious: No
  Sender: FDA-Public Use
  Company Number: US-ABBOTT-12P-163-0922875-00

PATIENT
  Age: 61 Year
  Sex: Female

DRUGS (12)
  1. HUMIRA 40 MG/0.8 ML PEN [Suspect]
     Indication: PSORIASIS
     Dosage: LOADING DOSE
     Dates: start: 20120329
  2. ZOLOFT [Concomitant]
     Indication: DISCOMFORT
  3. ZOLOFT [Concomitant]
     Indication: DEPRESSION
  4. ALLEGRA [Concomitant]
     Indication: HYPERSENSITIVITY
  5. SINGULAIR [Concomitant]
     Indication: HYPERSENSITIVITY
     Dosage: AT BEDTIME
  6. DEMEDEX [Concomitant]
     Indication: POLYURIA
  7. POTASSIUM [Concomitant]
     Indication: PRODUCT USED FOR UNKNOWN INDICATION
  8. LOSARTAN [Concomitant]
     Indication: HYPERTENSION
  9. COMBIVENT [Concomitant]
     Indication: ASTHMA
  10. ADVAIR [Concomitant]
     Indication: ASTHMA
     Dosage: 250MG/50MG
  11. BIOTIN [Concomitant]
     Indication: PRODUCT USED FOR UNKNOWN INDICATION
  12. MULTIVITAMIN [Concomitant]
     Indication: PRODUCT USED FOR UNKNOWN INDICATION
     Dosage: DAILY

REACTIONS (1)
  - Abdominal pain [Recovered/Resolved]
